FAERS Safety Report 19653704 (Version 2)
Quarter: 2021Q3

REPORT INFORMATION
  Report Type: Spontaneous
  Country: BE (occurrence: BE)
  Receive Date: 20210803
  Receipt Date: 20210812
  Transmission Date: 20211014
  Serious: Yes (Hospitalization)
  Sender: FDA-Public Use
  Company Number: BE-MYLANLABS-2021M1047087

PATIENT
  Age: 58 Year
  Sex: Female
  Weight: 78 kg

DRUGS (13)
  1. OMEPRAZOLE. [Concomitant]
     Active Substance: OMEPRAZOLE
     Indication: PROPHYLAXIS
     Dosage: UNK
     Route: 065
     Dates: start: 20200511
  2. HYLO GEL [Concomitant]
     Indication: DRY EYE
     Dosage: UNK
     Route: 065
     Dates: start: 20200706
  3. IMODIUM [Concomitant]
     Active Substance: LOPERAMIDE HYDROCHLORIDE
     Indication: DIARRHOEA
     Dosage: UNK
     Route: 065
     Dates: start: 20200907
  4. ABEMACICLIB [Suspect]
     Active Substance: ABEMACICLIB
     Indication: BREAST CANCER
     Dosage: 300 MILLIGRAM, QD (150 MG, BID)
     Route: 048
     Dates: start: 20190425
  5. ACECLOFENAC [Concomitant]
     Active Substance: ACECLOFENAC
     Indication: ARTHRALGIA
     Dosage: UNK
     Route: 065
     Dates: start: 20200515
  6. ZOLPIDEM [Concomitant]
     Active Substance: ZOLPIDEM TARTRATE
     Indication: INSOMNIA
     Dosage: UNK
     Route: 065
     Dates: start: 2014
  7. SIPRALEXA [Concomitant]
     Active Substance: ESCITALOPRAM OXALATE
     Indication: PROPHYLAXIS
     Dosage: UNK
     Route: 065
     Dates: start: 20200128
  8. LETROZOLE. [Suspect]
     Active Substance: LETROZOLE
     Indication: INVASIVE DUCTAL BREAST CARCINOMA
     Dosage: 2.5 MILLIGRAM, QD
     Route: 065
     Dates: start: 20190424, end: 20201005
  9. DAFALGAN [Concomitant]
     Active Substance: ACETAMINOPHEN
     Indication: ARTHRALGIA
     Dosage: UNK
     Route: 065
     Dates: start: 20180914
  10. FLEXOFYTOL [Concomitant]
     Active Substance: CURCUMIN
     Indication: MUSCULOSKELETAL STIFFNESS
     Dosage: UNK
     Route: 065
     Dates: start: 20200616
  11. ANASTROZOLE. [Suspect]
     Active Substance: ANASTROZOLE
     Indication: BREAST CANCER
     Dosage: 1 MILLIGRAM, QD
     Route: 065
     Dates: start: 20201012
  12. MUCOGYNE [Concomitant]
     Indication: VULVOVAGINAL DRYNESS
     Dosage: UNK
     Route: 065
     Dates: start: 20200320
  13. MENTHOL. [Concomitant]
     Active Substance: MENTHOL
     Indication: HAND DERMATITIS
     Dosage: UNK
     Route: 065
     Dates: start: 20190522

REACTIONS (1)
  - Erysipelas [Recovered/Resolved]

NARRATIVE: CASE EVENT DATE: 20201214
